FAERS Safety Report 12613644 (Version 1)
Quarter: 2016Q3

REPORT INFORMATION
  Report Type: Spontaneous
  Country: US (occurrence: US)
  Receive Date: 20160802
  Receipt Date: 20160802
  Transmission Date: 20161109
  Serious: Yes (Hospitalization)
  Sender: FDA-Public Use
  Company Number: US-INGENUS PHARMACEUTICALS, LLC-ING201607-000011

PATIENT
  Age: 36 Year
  Sex: Female

DRUGS (1)
  1. PHETERMINE HYDROCHLORIDE [Suspect]
     Active Substance: PHENTERMINE HYDROCHLORIDE
     Indication: WEIGHT DECREASED

REACTIONS (2)
  - Colitis ischaemic [Recovered/Resolved]
  - Inappropriate schedule of drug administration [Unknown]
